FAERS Safety Report 4605245-3 (Version None)
Quarter: 2005Q1

REPORT INFORMATION
  Report Type: 
  Country: None (occurrence: None)
  Receive Date: 20050310
  Receipt Date: 20040226
  Transmission Date: 20050727
  Serious: No
  Sender: FDA-Public Use
  Company Number: US-BRISTOL-MYERS SQUIBB COMPANY-12521894

PATIENT
  Age: 28 Year
  Sex: Female

DRUGS (4)
  1. VAGISTAT-1 [Suspect]
     Indication: VAGINAL MYCOSIS
     Route: 067
     Dates: start: 20040225, end: 20040225
  2. EFFEXOR [Concomitant]
  3. WELLBUTRIN [Concomitant]
  4. CONTRACEPTIVE [Concomitant]
     Route: 048

REACTIONS (1)
  - LOCALISED OEDEMA [None]
